FAERS Safety Report 4677107-7 (Version None)
Quarter: 2005Q2

REPORT INFORMATION
  Report Type: 
  Country: None (occurrence: None)
  Receive Date: 20050525
  Receipt Date: 20050525
  Transmission Date: 20051028
  Serious: Yes (Other)
  Sender: FDA-Public Use
  Company Number: None

PATIENT
  Age: 53 Year
  Sex: Female
  Weight: 92.53 kg

DRUGS (1)
  1. OXCARBAZEPINE   300 MG [Suspect]
     Dosage: 300 MG   TID   ORAL
     Route: 048

REACTIONS (1)
  - HYPONATRAEMIA [None]
